FAERS Safety Report 16654126 (Version 1)
Quarter: 2019Q3

REPORT INFORMATION
  Report Type: Spontaneous
  Country: US (occurrence: US)
  Receive Date: 20190731
  Receipt Date: 20190731
  Transmission Date: 20191004
  Serious: Yes (Other)
  Sender: FDA-Public Use
  Company Number: US-SA-2019SA203212

PATIENT
  Age: 69 Year
  Sex: Male

DRUGS (1)
  1. LUMIZYME [Suspect]
     Active Substance: ALGLUCOSIDASE ALFA
     Indication: GLYCOGEN STORAGE DISEASE TYPE II
     Dosage: 2150 MG, QOW
     Route: 041
     Dates: start: 20190103

REACTIONS (2)
  - Tendon rupture [Not Recovered/Not Resolved]
  - Carpal tunnel decompression [Not Recovered/Not Resolved]

NARRATIVE: CASE EVENT DATE: 2019
